FAERS Safety Report 7123028-X (Version None)
Quarter: 2010Q4

REPORT INFORMATION
  Report Type: 
  Country: None (occurrence: None)
  Receive Date: 20101125
  Receipt Date: 20101103
  Transmission Date: 20110411
  Serious: Yes (Hospitalization)
  Sender: FDA-Public Use
  Company Number: DE-AMGEN-DEUCT2010003047

PATIENT

DRUGS (5)
  1. ETANERCEPT [Suspect]
     Indication: RHEUMATOID ARTHRITIS
     Dosage: 50 MG, QWK
     Dates: start: 20100430
  2. PREDNISOLONE [Concomitant]
     Dosage: 2.5MG, FREQUENCY UNKNOWN
  3. ARAVA [Concomitant]
     Dosage: 20MG, FREQUENCY UNKNOWN
  4. LEVOTHYROXINE SODIUM [Concomitant]
     Dosage: 100A?G, FREQUENCY UNKNOWN
  5. ACTIVELLA [Concomitant]
     Dosage: UNKNOWN

REACTIONS (1)
  - INTERVERTEBRAL DISC PROTRUSION [None]
